FAERS Safety Report 8441624-4 (Version None)
Quarter: 2012Q2

REPORT INFORMATION
  Report Type: 
  Country: None (occurrence: None)
  Receive Date: 20120615
  Receipt Date: 20111016
  Transmission Date: 20120825
  Serious: No
  Sender: FDA-Public Use
  Company Number: US-NOVEN-11US003432

PATIENT
  Sex: Female
  Weight: 14.966 kg

DRUGS (2)
  1. DAYTRANA [Suspect]
     Indication: ATTENTION DEFICIT/HYPERACTIVITY DISORDER
     Dosage: 10 MG, QD
     Route: 062
     Dates: start: 20111016, end: 20111016
  2. CHILDRENS VITAMINS [Concomitant]
     Indication: MEDICAL DIET
     Dosage: UNK
     Route: 048

REACTIONS (7)
  - ANGER [None]
  - DYSKINESIA [None]
  - CRYING [None]
  - ABDOMINAL PAIN UPPER [None]
  - DECREASED APPETITE [None]
  - OFF LABEL USE [None]
  - ABNORMAL BEHAVIOUR [None]
